FAERS Safety Report 7920489-0 (Version None)
Quarter: 2011Q4

REPORT INFORMATION
  Report Type: 
  Country: None (occurrence: None)
  Receive Date: 20111117
  Receipt Date: 20111109
  Transmission Date: 20120403
  Serious: Yes (Other)
  Sender: FDA-Public Use
  Company Number: PHHY2011BR098538

PATIENT
  Age: 86 Year
  Sex: Female

DRUGS (6)
  1. EXELON [Suspect]
     Indication: DEMENTIA ALZHEIMER'S TYPE
     Dosage: 1.5 MG, 2 CAPSULES A DAY
     Dates: start: 20090101
  2. EXELON [Suspect]
     Dosage: 1.5 MG, 2 CAPSULES A DAY
     Dates: start: 20090101
  3. EXELON [Suspect]
     Dosage: 4.5 MG, 2 CAPSULES A DAY
  4. EXELON [Suspect]
     Dosage: 3 MG, 2 CAPSULES A DAY
  5. EXODUS [Concomitant]
     Dosage: UNK UKN, UNK
  6. ANTIHYPERTENSIVES [Concomitant]

REACTIONS (5)
  - POISONING [None]
  - QUALITY OF LIFE DECREASED [None]
  - PSYCHIATRIC SYMPTOM [None]
  - HYPOPHAGIA [None]
  - VOMITING [None]
